FAERS Safety Report 8911225 (Version 1)
Quarter: 2012Q4

REPORT INFORMATION
  Report Type: 
  Country: US (occurrence: US)
  Receive Date: 20121116
  Receipt Date: 20121116
  Transmission Date: 20130627
  Serious: Yes (Hospitalization)
  Sender: FDA-Public Use
  Company Number: US-GLAXOSMITHKLINE-A0992602A

PATIENT
  Age: 69 Year
  Sex: Male

DRUGS (2)
  1. VOTRIENT [Suspect]
     Indication: RENAL CANCER
     Dosage: 800MG Per day
     Route: 048
  2. ANTIHYPERTENSIVE [Concomitant]

REACTIONS (5)
  - Haemorrhage [Unknown]
  - Aphagia [Unknown]
  - Rash [Unknown]
  - Hypertension [Unknown]
  - Blood pressure increased [Unknown]
